FAERS Safety Report 19536684 (Version 5)
Quarter: 2021Q4

REPORT INFORMATION
  Report Type: Spontaneous
  Country: US (occurrence: IT)
  Receive Date: 20210713
  Receipt Date: 20211011
  Transmission Date: 20220303
  Serious: Yes (Hospitalization, Other)
  Sender: FDA-Public Use
  Company Number: IT-BIOMARINAP-IT-2021-137444

PATIENT
  Age: 9 Year
  Sex: Male
  Weight: 18.7 kg

DRUGS (6)
  1. ALDURAZYME [Suspect]
     Active Substance: LARONIDASE
     Indication: Mucopolysaccharidosis I
     Dosage: 3 DOSAGE FORM, QW
     Route: 041
     Dates: start: 20140717, end: 20210921
  2. LASIX [Concomitant]
     Active Substance: FUROSEMIDE
     Indication: Product used for unknown indication
     Dosage: 25 MILLIGRAM
  3. RISPERIDONE [Concomitant]
     Active Substance: RISPERIDONE
     Indication: Product used for unknown indication
     Dosage: UNK
  4. Melamil [Concomitant]
     Indication: Product used for unknown indication
     Dosage: UNK
  5. SPIRONOLACTONE [Concomitant]
     Active Substance: SPIRONOLACTONE
     Indication: Product used for unknown indication
     Dosage: UNK
  6. ALDACTONE [Concomitant]
     Active Substance: SPIRONOLACTONE
     Indication: Product used for unknown indication
     Dosage: UNK

REACTIONS (8)
  - Mitral valve stenosis [Unknown]
  - Upper airway obstruction [Unknown]
  - Intracranial pressure increased [Unknown]
  - Vomiting [Unknown]
  - Tonsillar hypertrophy [Unknown]
  - Sleep apnoea syndrome [Unknown]
  - Tooth disorder [Unknown]
  - Pyrexia [Recovered/Resolved]

NARRATIVE: CASE EVENT DATE: 20210401
